FAERS Safety Report 4326245-7 (Version None)
Quarter: 2004Q1

REPORT INFORMATION
  Report Type: 
  Country: None (occurrence: None)
  Receive Date: 20040324
  Receipt Date: 20040219
  Transmission Date: 20041129
  Serious: Yes (Hospitalization)
  Sender: FDA-Public Use
  Company Number: F022000400011

PATIENT
  Age: 74 Year
  Sex: Male

DRUGS (3)
  1. XATRAL-(ALFUZOSIN)-TABLET PR-10 MG [Suspect]
     Indication: BENIGN PROSTATIC HYPERPLASIA
     Dosage: 10 MG OD ORAL
     Route: 048
     Dates: start: 20010122, end: 20030917
  2. LASIX [Concomitant]
  3. CORDARONE [Concomitant]

REACTIONS (1)
  - GASTRIC CANCER [None]
